FAERS Safety Report 6010169-3 (Version None)
Quarter: 2008Q4

REPORT INFORMATION
  Report Type: 
  Country: None (occurrence: None)
  Receive Date: 20081218
  Receipt Date: 20081216
  Transmission Date: 20090506
  Serious: Yes (Other)
  Sender: FDA-Public Use
  Company Number: GB-BRISTOL-MYERS SQUIBB COMPANY-14444475

PATIENT
  Age: 45 Year
  Sex: Female
  Weight: 69 kg

DRUGS (7)
  1. ABATACEPT [Suspect]
     Indication: RHEUMATOID ARTHRITIS
     Dates: start: 20071101, end: 20081015
  2. CO-DYDRAMOL [Concomitant]
  3. FOLIC ACID [Concomitant]
  4. GALFER [Concomitant]
  5. IODINE [Concomitant]
  6. METHOTREXATE [Concomitant]
  7. LANSOPRAZOLE [Concomitant]

REACTIONS (3)
  - ANAPHYLACTIC REACTION [None]
  - FLUSHING [None]
  - MENSTRUATION IRREGULAR [None]
